FAERS Safety Report 22025867 (Version 2)
Quarter: 2023Q1

REPORT INFORMATION
  Report Type: Spontaneous
  Country: US (occurrence: US)
  Receive Date: 20230223
  Receipt Date: 20230228
  Transmission Date: 20230418
  Serious: No
  Sender: FDA-Public Use
  Company Number: US-002147023-NVSC2023US041640

PATIENT
  Sex: Female

DRUGS (1)
  1. XIIDRA [Suspect]
     Active Substance: LIFITEGRAST
     Indication: Product used for unknown indication
     Dosage: UNK (1 DROP IN EACH EYE TWICE PER DAY)
     Route: 047
     Dates: start: 20230204

REACTIONS (2)
  - Drug dose omission by device [Unknown]
  - Product packaging quantity issue [Unknown]
